FAERS Safety Report 17982557 (Version 1)
Quarter: 2020Q3

REPORT INFORMATION
  Report Type: Spontaneous
  Country: None (occurrence: LT)
  Receive Date: 20200706
  Receipt Date: 20200706
  Transmission Date: 20201103
  Serious: Yes (Hospitalization, Other)
  Sender: FDA-Public Use
  Company Number: LT-ORION CORPORATION ORION PHARMA-TREX2020-2240

PATIENT
  Age: 55 Year
  Sex: Female

DRUGS (9)
  1. METHYLPREDNISOLONE. [Suspect]
     Active Substance: METHYLPREDNISOLONE
     Indication: RHEUMATOID ARTHRITIS
     Route: 065
  2. FOLIC ACID. [Suspect]
     Active Substance: FOLIC ACID
     Indication: RHEUMATOID ARTHRITIS
     Route: 065
  3. CEFTAZIDIME. [Concomitant]
     Active Substance: CEFTAZIDIME
     Indication: IMMUNOSUPPRESSANT DRUG THERAPY
     Route: 017
  4. METHYLPREDNISOLONE. [Suspect]
     Active Substance: METHYLPREDNISOLONE
     Dosage: DECREASED DOSE
     Route: 065
  5. PLAQUENIL [Suspect]
     Active Substance: HYDROXYCHLOROQUINE SULFATE
     Indication: RHEUMATOID ARTHRITIS
     Route: 065
  6. METHOTREXATE. [Suspect]
     Active Substance: METHOTREXATE
     Indication: RHEUMATOID ARTHRITIS
     Dosage: DOSE WAS INCREASED TO 15 MG PER WEEK
     Route: 065
  7. LORNOXICAM [Suspect]
     Active Substance: LORNOXICAM
     Indication: RHEUMATOID ARTHRITIS
     Route: 065
  8. VERAPAMIL?TRANDOLAPRIL [Suspect]
     Active Substance: TRANDOLAPRIL\VERAPAMIL
     Indication: HYPERTENSION
     Dosage: DOSE: 240MG/4MG
     Route: 065
  9. INFLIXIMAB [Suspect]
     Active Substance: INFLIXIMAB
     Indication: RHEUMATOID ARTHRITIS
     Dosage: TWO COURSES
     Route: 065
     Dates: start: 20200619, end: 20200624

REACTIONS (6)
  - Drug ineffective [Unknown]
  - Tick-borne viral encephalitis [Recovering/Resolving]
  - Osteoporosis [Unknown]
  - Pancytopenia [Unknown]
  - Drug-induced liver injury [Unknown]
  - Drug intolerance [Unknown]

NARRATIVE: CASE EVENT DATE: 20190624
